FAERS Safety Report 23706651 (Version 1)
Quarter: 2024Q2

REPORT INFORMATION
  Report Type: Report from Study
  Country: US (occurrence: US)
  Receive Date: 20240404
  Receipt Date: 20240404
  Transmission Date: 20240715
  Serious: Yes (Hospitalization, Other)
  Sender: FDA-Public Use
  Company Number: US-ABBVIE-5703757

PATIENT
  Age: 61 Year
  Sex: Male

DRUGS (2)
  1. SKYRIZI [Suspect]
     Active Substance: RISANKIZUMAB-RZAA
     Indication: Crohn^s disease
     Route: 058
     Dates: start: 20231120
  2. SKYRIZI [Suspect]
     Active Substance: RISANKIZUMAB-RZAA
     Indication: Crohn^s disease
     Dosage: AFTER THE 3 INFUSIONS,
     Route: 042

REACTIONS (7)
  - Hypertension [Recovered/Resolved]
  - Depression [Recovering/Resolving]
  - Nasopharyngitis [Recovered/Resolved]
  - Crohn^s disease [Not Recovered/Not Resolved]
  - Cerebrovascular accident [Recovered/Resolved]
  - Cardiac disorder [Recovered/Resolved]
  - Device issue [Unknown]

NARRATIVE: CASE EVENT DATE: 20240101
